FAERS Safety Report 10220003 (Version 1)
Quarter: 2014Q2

REPORT INFORMATION
  Report Type: Spontaneous
  Country: GB (occurrence: GB)
  Receive Date: 20140605
  Receipt Date: 20140605
  Transmission Date: 20141212
  Serious: Yes (Hospitalization, Disabling)
  Sender: FDA-Public Use
  Company Number: PHHY2014GB065903

PATIENT
  Age: 68 Year
  Sex: Female
  Weight: 59 kg

DRUGS (6)
  1. ATORVASTATIN [Suspect]
     Indication: BLOOD CHOLESTEROL INCREASED
     Route: 048
     Dates: start: 20101211, end: 20110517
  2. ATENOLOL [Concomitant]
  3. ROSUVASTATIN [Concomitant]
     Indication: BLOOD CHOLESTEROL INCREASED
     Dosage: 5 MG, UNK
     Route: 048
     Dates: start: 20100714, end: 20101209
  4. CALCIUM [Concomitant]
  5. VITAMIN D3 [Concomitant]
  6. BISOPROLOL [Concomitant]

REACTIONS (3)
  - Blister [Recovered/Resolved with Sequelae]
  - Pruritus generalised [Recovered/Resolved with Sequelae]
  - Myalgia [Unknown]
